FAERS Safety Report 5139749-4 (Version None)
Quarter: 2006Q4

REPORT INFORMATION
  Report Type: 
  Country: None (occurrence: None)
  Receive Date: 20061024
  Receipt Date: 20061012
  Transmission Date: 20070319
  Serious: Yes (Death)
  Sender: FDA-Public Use
  Company Number: HQWYE008912OCT06

PATIENT
  Age: 57 Year
  Sex: Male

DRUGS (1)
  1. ETODOLAC [Suspect]
     Dosage: ORAL
     Route: 048
     Dates: start: 20011201, end: 20020101

REACTIONS (2)
  - APLASTIC ANAEMIA [None]
  - PNEUMONIA [None]
